FAERS Safety Report 19208554 (Version 3)
Quarter: 2021Q3

REPORT INFORMATION
  Report Type: Report from Study
  Country: US (occurrence: US)
  Receive Date: 20210503
  Receipt Date: 20210802
  Transmission Date: 20211014
  Serious: Yes (Hospitalization, Other)
  Sender: FDA-Public Use
  Company Number: US-SHIRE-US201832775AA

PATIENT
  Sex: Female

DRUGS (2)
  1. CUVITRU [Suspect]
     Active Substance: HUMAN IMMUNOGLOBULIN G
     Indication: PRIMARY IMMUNODEFICIENCY SYNDROME
  2. CUVITRU [Suspect]
     Active Substance: HUMAN IMMUNOGLOBULIN G
     Indication: IMMUNODEFICIENCY COMMON VARIABLE
     Route: 065

REACTIONS (9)
  - Headache [Unknown]
  - Swelling face [Unknown]
  - Onychoclasis [Unknown]
  - COVID-19 pneumonia [Unknown]
  - Nausea [Unknown]
  - Product availability issue [Unknown]
  - Upper respiratory tract infection [Unknown]
  - Mouth ulceration [Unknown]
  - Herpes zoster [Unknown]
